FAERS Safety Report 5998805-9 (Version None)
Quarter: 2008Q4

REPORT INFORMATION
  Report Type: 
  Country: None (occurrence: None)
  Receive Date: 20081213
  Receipt Date: 20080721
  Transmission Date: 20090506
  Serious: No
  Sender: FDA-Public Use
  Company Number: US-AMGEN-KDL296331

PATIENT
  Sex: Female

DRUGS (1)
  1. ENBREL [Suspect]
     Indication: RHEUMATOID ARTHRITIS
     Route: 058
     Dates: start: 19980101

REACTIONS (4)
  - HYPOTHYROIDISM [None]
  - INAPPROPRIATE AFFECT [None]
  - MEMORY IMPAIRMENT [None]
  - TREMOR [None]
